FAERS Safety Report 9466592 (Version 3)
Quarter: 2013Q3

REPORT INFORMATION
  Report Type: Spontaneous
  Country: FI (occurrence: FI)
  Receive Date: 20130820
  Receipt Date: 20130828
  Transmission Date: 20140515
  Serious: Yes (Disabling, Other)
  Sender: FDA-Public Use
  Company Number: FI-PFIZER INC-2013239296

PATIENT
  Age: 75 Year
  Sex: Female

DRUGS (3)
  1. AMIODARONE HCL [Suspect]
     Indication: ATRIAL FIBRILLATION
     Dosage: 200 MG A DAY
  2. AMIODARONE [Suspect]
     Indication: ATRIAL FIBRILLATION
     Dosage: UNK
     Route: 042
  3. WARFARIN [Concomitant]
     Indication: THROMBOSIS PROPHYLAXIS
     Dosage: UNK

REACTIONS (4)
  - Optic neuropathy [Not Recovered/Not Resolved]
  - Blindness [Not Recovered/Not Resolved]
  - Papilloedema [Recovered/Resolved]
  - Optic disc haemorrhage [Not Recovered/Not Resolved]
